FAERS Safety Report 25479859 (Version 1)
Quarter: 2025Q2

REPORT INFORMATION
  Report Type: Spontaneous
  Country: US (occurrence: US)
  Receive Date: 20250625
  Receipt Date: 20250625
  Transmission Date: 20250716
  Serious: Yes (Other)
  Sender: AMGEN
  Company Number: US-AMGEN-USASP2025121371

PATIENT
  Age: 70 Year
  Sex: Female
  Weight: 13.605 kg

DRUGS (1)
  1. REPATHA [Suspect]
     Active Substance: EVOLOCUMAB
     Indication: Blood cholesterol increased
     Dosage: 140 MILLIGRAM, Q2WK
     Route: 065

REACTIONS (14)
  - Cerebrovascular accident [Unknown]
  - Carotid artery occlusion [Unknown]
  - Myocardial infarction [Unknown]
  - Device difficult to use [Unknown]
  - Mobility decreased [Unknown]
  - Weight increased [Unknown]
  - Drug dose omission by device [Unknown]
  - Anxiety [Unknown]
  - Pain [Unknown]
  - Pruritus [Unknown]
  - Oropharyngeal pain [Unknown]
  - Rhinorrhoea [Unknown]
  - Overweight [Unknown]
  - Neck injury [Unknown]

NARRATIVE: CASE EVENT DATE: 20250601
